FAERS Safety Report 7265906-7 (Version None)
Quarter: 2011Q1

REPORT INFORMATION
  Report Type: 
  Country: None (occurrence: None)
  Receive Date: 20110131
  Receipt Date: 20110124
  Transmission Date: 20110831
  Serious: Yes (Life-Threatening, Hospitalization, Disabling)
  Sender: FDA-Public Use
  Company Number: B0696200A

PATIENT
  Sex: Male
  Weight: 16.8 kg

DRUGS (52)
  1. ALKERAN [Suspect]
     Indication: STEM CELL TRANSPLANT
     Dosage: 57MG PER DAY
     Route: 042
     Dates: start: 20080520, end: 20080521
  2. CARBOPLATIN [Suspect]
     Indication: STEM CELL TRANSPLANT
     Dosage: 250MG PER DAY
     Route: 042
     Dates: start: 20080516, end: 20080519
  3. EPOGIN [Concomitant]
     Dates: start: 20080625, end: 20080625
  4. PRIMPERAN TAB [Concomitant]
     Dosage: 1.2MG PER DAY
     Dates: start: 20080607, end: 20080623
  5. DIFLUCAN [Concomitant]
     Dosage: 50MG PER DAY
     Route: 048
     Dates: start: 20080612, end: 20080614
  6. VITAMEDIN [Concomitant]
     Dosage: 1IUAX PER DAY
     Route: 042
     Dates: start: 20080520, end: 20080529
  7. CONCLYTE-MG [Concomitant]
     Dosage: 32ML PER DAY
     Dates: start: 20080528, end: 20080601
  8. KIDMIN [Concomitant]
     Dosage: 200ML PER DAY
     Dates: start: 20080529, end: 20080712
  9. OMEPRAL [Concomitant]
     Dosage: 10MG PER DAY
     Route: 042
     Dates: start: 20080601, end: 20080624
  10. EPOGIN [Concomitant]
     Dates: start: 20080709, end: 20080709
  11. ARTIST [Concomitant]
     Dosage: 1.4MG PER DAY
     Route: 048
     Dates: start: 20080617
  12. MAGMITT [Concomitant]
     Dosage: 250MG PER DAY
     Route: 048
     Dates: start: 20080711
  13. MILRINONE [Concomitant]
     Dosage: 2MG PER DAY
     Route: 042
     Dates: start: 20080529, end: 20080716
  14. ALBUMIN (HUMAN) [Concomitant]
     Dosage: 50ML PER DAY
     Route: 042
     Dates: start: 20080813, end: 20080813
  15. ACYCRIL [Concomitant]
     Dosage: 140MG PER DAY
     Route: 042
     Dates: start: 20080522, end: 20080603
  16. OMEPRAL [Concomitant]
     Dosage: 5MG PER DAY
     Route: 042
     Dates: start: 20080801, end: 20080806
  17. PREDONINE [Concomitant]
     Dosage: 30MG PER DAY
     Dates: start: 20080602, end: 20080816
  18. ALLOID G [Concomitant]
     Dosage: 30ML PER DAY
     Route: 048
     Dates: start: 20080605, end: 20080618
  19. SOLU-CORTEF [Concomitant]
     Dosage: 70MG PER DAY
     Dates: start: 20080523, end: 20080528
  20. DECADRON [Concomitant]
     Dosage: 33MG PER DAY
     Dates: start: 20080522, end: 20080522
  21. CALCICOL [Concomitant]
     Dosage: 20ML PER DAY
     Route: 042
     Dates: start: 20080524, end: 20080526
  22. DOPAMINE HYDROCHLORIDE [Concomitant]
     Dosage: 100MG PER DAY
     Route: 042
     Dates: start: 20080525, end: 20080527
  23. URSO 250 [Concomitant]
     Dosage: 45MG PER DAY
     Route: 048
     Dates: start: 20080523, end: 20080616
  24. ZOFRAN [Concomitant]
     Dosage: 1.6MG PER DAY
     Route: 042
     Dates: start: 20080516, end: 20080526
  25. ATARAX [Concomitant]
     Dosage: 14MG PER DAY
     Route: 042
     Dates: start: 20080513, end: 20080526
  26. FUROSEMIDE [Concomitant]
     Dosage: 5MG PER DAY
     Route: 042
     Dates: start: 20080522, end: 20080524
  27. MEROPENEM [Concomitant]
     Dosage: 400MG PER DAY
     Dates: start: 20080526, end: 20080531
  28. ALBUMIN (HUMAN) [Concomitant]
     Dosage: 50ML PER DAY
     Route: 042
     Dates: start: 20080524, end: 20080526
  29. CEFTAZIDIME [Concomitant]
     Dosage: .5G PER DAY
     Route: 042
     Dates: start: 20080531, end: 20080603
  30. LASTET [Suspect]
     Indication: STEM CELL TRANSPLANT
     Dosage: 130MG PER DAY
     Route: 042
     Dates: start: 20080516, end: 20080519
  31. MINOMYCIN [Concomitant]
     Dosage: 60MG PER DAY
     Route: 042
     Dates: start: 20080607, end: 20080611
  32. HISHIPHAGEN C [Concomitant]
     Dosage: 20ML PER DAY
     Route: 042
     Dates: start: 20080518, end: 20080531
  33. MORPHINE HYDROCHLORIDE [Concomitant]
     Dosage: 10MG PER DAY
     Dates: start: 20080521, end: 20080602
  34. TARGOCID [Concomitant]
     Dosage: 240MG PER DAY
     Route: 042
     Dates: start: 20080528, end: 20080531
  35. ANTHROBIN P [Concomitant]
     Dosage: 500IU PER DAY
     Route: 042
     Dates: start: 20080602, end: 20080602
  36. GRAN [Concomitant]
     Dates: start: 20080528, end: 20080602
  37. ACIROVEC [Concomitant]
     Dosage: 180MG PER DAY
     Route: 048
     Dates: start: 20080519, end: 20080627
  38. ITRIZOLE [Concomitant]
     Dosage: 6ML PER DAY
     Route: 048
     Dates: start: 20080519, end: 20080529
  39. ASPIRIN [Concomitant]
     Dosage: 420MG PER DAY
     Route: 048
     Dates: start: 20080605, end: 20080804
  40. SODIUM BICARBONATE [Concomitant]
     Dosage: 1G PER DAY
     Route: 048
     Dates: start: 20080620
  41. MAXIPIME [Concomitant]
     Dosage: .5G PER DAY
     Route: 042
     Dates: start: 20080518, end: 20080609
  42. FUNGUARD [Concomitant]
     Dosage: 50MG PER DAY
     Route: 042
     Dates: start: 20080520, end: 20080710
  43. VICCILLIN [Concomitant]
     Dosage: 500MG PER DAY
     Route: 030
     Dates: start: 20080725, end: 20080730
  44. IMMUNE GLOBULIN INTRAVENOUS (HUMAN) [Concomitant]
     Dosage: 5G PER DAY
     Route: 042
     Dates: start: 20080616, end: 20080616
  45. PRECIPITATED CALCIUM CARBONATE [Concomitant]
     Dosage: 1.5G PER DAY
     Route: 048
     Dates: start: 20080627
  46. SAWACILLIN [Concomitant]
     Dosage: 100MG PER DAY
     Route: 048
     Dates: start: 20080724, end: 20080726
  47. FAMOTIDINE [Concomitant]
     Dosage: 10MG PER DAY
     Dates: start: 20080519, end: 20080601
  48. PAZUCROSS [Concomitant]
     Dosage: 70ML PER DAY
     Route: 042
     Dates: start: 20080530, end: 20080610
  49. DECADRON [Concomitant]
     Dosage: 7MG PER DAY
     Dates: start: 20080604, end: 20080604
  50. BACTRIM [Concomitant]
     Dosage: .7G PER DAY
     Route: 048
     Dates: start: 20080603, end: 20080627
  51. TAKEPRON [Concomitant]
     Dosage: .25IUAX PER DAY
     Route: 048
     Dates: start: 20080807
  52. FAMOTIDINE [Concomitant]
     Dosage: 1.6MG PER DAY
     Dates: start: 20080728, end: 20080801

REACTIONS (2)
  - CONGESTIVE CARDIOMYOPATHY [None]
  - RENAL FAILURE [None]
